FAERS Safety Report 21361162 (Version 8)
Quarter: 2023Q4

REPORT INFORMATION
  Report Type: Report from Study
  Country: US (occurrence: US)
  Receive Date: 20220921
  Receipt Date: 20231026
  Transmission Date: 20240109
  Serious: No
  Sender: FDA-Public Use
  Company Number: US-NOVARTISTESTPH-NVSC2022US213413

PATIENT
  Sex: Male

DRUGS (1)
  1. COSENTYX [Suspect]
     Active Substance: SECUKINUMAB
     Indication: Psoriasis
     Dosage: 300 MG, QMO
     Route: 065
     Dates: start: 20220920, end: 20231017

REACTIONS (9)
  - Hypersensitivity [Unknown]
  - Productive cough [Unknown]
  - Nasal congestion [Unknown]
  - Rash [Unknown]
  - Urticaria [Unknown]
  - Flatulence [Unknown]
  - Abdominal distension [Unknown]
  - Psoriasis [Unknown]
  - Therapeutic product effect incomplete [Unknown]
